FAERS Safety Report 21237970 (Version 4)
Quarter: 2023Q4

REPORT INFORMATION
  Report Type: Spontaneous
  Country: US (occurrence: US)
  Receive Date: 20220822
  Receipt Date: 20231212
  Transmission Date: 20240109
  Serious: No
  Sender: FDA-Public Use
  Company Number: US-GSKCCFUS-Case-01467872_AE-84000

PATIENT
  Age: 80 Year
  Sex: Male

DRUGS (3)
  1. NUCALA [Suspect]
     Active Substance: MEPOLIZUMAB
     Indication: Asthma
     Dosage: 100 MG/ML, MO
     Route: 058
  2. NUCALA [Suspect]
     Active Substance: MEPOLIZUMAB
     Indication: Chronic obstructive pulmonary disease
  3. NUCALA [Suspect]
     Active Substance: MEPOLIZUMAB
     Indication: Multiple allergies

REACTIONS (6)
  - Dyspnoea [Unknown]
  - Exposure via skin contact [Unknown]
  - Injection site haemorrhage [Recovered/Resolved]
  - Product dose omission issue [Unknown]
  - Inappropriate schedule of product administration [Unknown]
  - Product complaint [Unknown]

NARRATIVE: CASE EVENT DATE: 20231121
